FAERS Safety Report 23893951 (Version 1)
Quarter: 2024Q2

REPORT INFORMATION
  Report Type: Spontaneous
  Country: FR (occurrence: FR)
  Receive Date: 20240524
  Receipt Date: 20240524
  Transmission Date: 20240716
  Serious: Yes (Hospitalization)
  Sender: FDA-Public Use
  Company Number: None

PATIENT
  Age: 75 Year
  Sex: Female
  Weight: 70 kg

DRUGS (14)
  1. TRODELVY [Suspect]
     Active Substance: SACITUZUMAB GOVITECAN-HZIY
     Indication: Triple negative breast cancer
     Dosage: 10 MG/KG, CYCLICAL
     Route: 042
     Dates: start: 20240327, end: 20240327
  2. TRODELVY [Suspect]
     Active Substance: SACITUZUMAB GOVITECAN-HZIY
     Dosage: 10 MG/KG, CYCLICAL
     Route: 042
     Dates: start: 20240319, end: 20240319
  3. TRAMADOL HYDROCHLORIDE [Concomitant]
     Active Substance: TRAMADOL HYDROCHLORIDE
  4. ACETAMINOPHEN [Concomitant]
     Active Substance: ACETAMINOPHEN
  5. LOPERAMIDE HYDROCHLORIDE [Concomitant]
     Active Substance: LOPERAMIDE HYDROCHLORIDE
  6. METFORMIN [Concomitant]
     Active Substance: METFORMIN HYDROCHLORIDE
  7. RACECADOTRIL [Concomitant]
     Active Substance: RACECADOTRIL
  8. SIMVASTATIN [Concomitant]
     Active Substance: SIMVASTATIN
  9. ALPRAZOLAM [Concomitant]
     Active Substance: ALPRAZOLAM
  10. MONTMORILLONITE [Concomitant]
     Active Substance: MONTMORILLONITE
  11. ELIQUIS [Concomitant]
     Active Substance: APIXABAN
  12. BISOPROLOL FUMARATE [Concomitant]
     Active Substance: BISOPROLOL FUMARATE
  13. EZETIMIBE [Concomitant]
     Active Substance: EZETIMIBE
  14. LEVOTHYROXINE [Concomitant]
     Active Substance: LEVOTHYROXINE\LEVOTHYROXINE SODIUM

REACTIONS (4)
  - General physical health deterioration [Recovering/Resolving]
  - Anal sphincter atony [Recovering/Resolving]
  - Bladder sphincter atony [Recovering/Resolving]
  - Motor dysfunction [Recovering/Resolving]

NARRATIVE: CASE EVENT DATE: 20240301
